FAERS Safety Report 13959030 (Version 1)
Quarter: 2017Q3

REPORT INFORMATION
  Report Type: Spontaneous
  Country: DE (occurrence: DE)
  Receive Date: 20170911
  Receipt Date: 20170911
  Transmission Date: 20171128
  Serious: Yes (Death, Other)
  Sender: FDA-Public Use
  Company Number: PHHY2017DE133331

PATIENT
  Age: 79 Year
  Sex: Male

DRUGS (7)
  1. OCTREOTIDE. [Suspect]
     Active Substance: OCTREOTIDE
     Indication: MALIGNANT NEOPLASM OF UNKNOWN PRIMARY SITE
     Dosage: 20 MG, QMO
     Route: 065
     Dates: start: 201208
  2. AMLODIPINE [Concomitant]
     Active Substance: AMLODIPINE BESYLATE
     Indication: HYPERTENSION
     Dosage: 10 MG, QD
  3. AMLODIPINE [Concomitant]
     Active Substance: AMLODIPINE BESYLATE
     Dosage: 10 MG, QD (5-10 MG)
  4. OCTREOTIDE. [Suspect]
     Active Substance: OCTREOTIDE
     Dosage: 30 MG, QMO
     Route: 065
     Dates: start: 201302
  5. EVEROLIMUS [Suspect]
     Active Substance: EVEROLIMUS
     Dosage: 5 MG/KG, QD
     Route: 065
     Dates: start: 201404, end: 201407
  6. EVEROLIMUS [Suspect]
     Active Substance: EVEROLIMUS
     Indication: MALIGNANT NEOPLASM OF UNKNOWN PRIMARY SITE
     Dosage: 10 MG, QD
     Route: 065
     Dates: start: 201403
  7. SUNITINIB [Concomitant]
     Active Substance: SUNITINIB
     Indication: PRODUCT USED FOR UNKNOWN INDICATION
     Dosage: 37.5 MG, QD
     Route: 065
     Dates: start: 201302

REACTIONS (16)
  - Tumour thrombosis [Unknown]
  - Syncope [Unknown]
  - Metastases to liver [Unknown]
  - Product use in unapproved indication [Unknown]
  - Death [Fatal]
  - Hypokalaemia [Unknown]
  - Hepatic failure [Unknown]
  - Renal failure [Unknown]
  - Neutropenia [Recovered/Resolved]
  - Hypertension [Recovered/Resolved]
  - Anaemia [Recovering/Resolving]
  - Rash maculo-papular [Unknown]
  - Blood creatinine increased [Unknown]
  - Inferior vena caval occlusion [Unknown]
  - Oedema peripheral [Unknown]
  - Generalised oedema [Unknown]

NARRATIVE: CASE EVENT DATE: 201301
